FAERS Safety Report 10423922 (Version 3)
Quarter: 2014Q4

REPORT INFORMATION
  Report Type: Spontaneous
  Country: SE (occurrence: SE)
  Receive Date: 20140902
  Receipt Date: 20141224
  Transmission Date: 20150528
  Serious: Yes (Hospitalization)
  Sender: FDA-Public Use
  Company Number: SE-PFIZER INC-2014240256

PATIENT
  Age: 27 Year
  Sex: Male

DRUGS (9)
  1. EXTAVIA [Concomitant]
     Active Substance: INTERFERON BETA-1B
     Indication: MULTIPLE SCLEROSIS
     Dosage: 250 MICROGRAM/ML
  2. XANOR DEPOT [Suspect]
     Active Substance: ALPRAZOLAM
     Dosage: 3.5 MG, UNK
     Route: 048
     Dates: start: 20130417, end: 20130417
  3. IMOVANE [Suspect]
     Active Substance: ZOPICLONE
     Dosage: 30 MG, UNK
     Route: 048
     Dates: start: 20130417, end: 20130417
  4. SERTRALINE [Concomitant]
     Active Substance: SERTRALINE HYDROCHLORIDE
     Dosage: UNK
  5. SEROQUEL [Suspect]
     Active Substance: QUETIAPINE FUMARATE
     Dosage: 300 MG, UNK
     Route: 048
     Dates: start: 20130417, end: 20130417
  6. RITALIN [Concomitant]
     Active Substance: METHYLPHENIDATE HYDROCHLORIDE
     Dosage: UNK
  7. XANOR DEPOT [Suspect]
     Active Substance: ALPRAZOLAM
     Dosage: UNK
  8. STRATTERA [Concomitant]
     Active Substance: ATOMOXETINE HYDROCHLORIDE
     Dosage: UNK
  9. ALVEDON [Concomitant]
     Active Substance: ACETAMINOPHEN
     Dosage: UNK

REACTIONS (2)
  - Toxicity to various agents [Recovered/Resolved]
  - Panic reaction [Unknown]

NARRATIVE: CASE EVENT DATE: 20130417
